FAERS Safety Report 14846034 (Version 1)
Quarter: 2018Q2

REPORT INFORMATION
  Report Type: Spontaneous
  Country: NO (occurrence: NO)
  Receive Date: 20180504
  Receipt Date: 20180504
  Transmission Date: 20180711
  Serious: Yes (Hospitalization)
  Sender: FDA-Public Use
  Company Number: NO-ACCORD-066456

PATIENT
  Sex: Male
  Weight: 76 kg

DRUGS (4)
  1. TRAMADOL/TRAMADOL HYDROCHLORIDE [Suspect]
     Active Substance: TRAMADOL HYDROCHLORIDE
     Indication: PRODUCT USED FOR UNKNOWN INDICATION
     Dosage: STRENGTH: 50 MG
  2. BUSPIRONE [Suspect]
     Active Substance: BUSPIRONE HYDROCHLORIDE
     Indication: ANXIETY
     Dosage: STRENGTH: 10 MG
     Dates: start: 20160122, end: 20160305
  3. TRUXAL [Suspect]
     Active Substance: CHLORPROTHIXENE
     Indication: ANXIETY DISORDER
     Dosage: STRENGTH: 100 MG
     Dates: start: 19911005, end: 19911023
  4. LYRICA [Suspect]
     Active Substance: PREGABALIN
     Indication: ANXIETY
     Dosage: STRENGTH: 225 MG
     Dates: start: 20120321, end: 20120710

REACTIONS (2)
  - Apathy [Recovered/Resolved with Sequelae]
  - Injury [Recovered/Resolved with Sequelae]

NARRATIVE: CASE EVENT DATE: 20110306
